FAERS Safety Report 10236959 (Version 1)
Quarter: 2014Q1

REPORT INFORMATION
  Report Type: Spontaneous
  Country: US (occurrence: None)
  Receive Date: 20140306
  Receipt Date: 20140306
  Transmission Date: 20141002
  Serious: Yes (Other)
  Sender: FDA-Public Use
  Company Number: 163-21880-13054620

PATIENT
  Age: 60 Year
  Sex: Female
  Weight: 71.22 kg

DRUGS (6)
  1. REVLIMID (LENALIDOMIDE) (25 MILLIGRAM, CAPSULES) [Suspect]
     Indication: PLASMA CELL MYELOMA
     Dosage: 21 IN 28 D
     Route: 048
     Dates: start: 201304
  2. VICODIN ES (VICODIN) [Concomitant]
  3. ENABLEX (DARIFENANACIN HYDROROMIDE) [Concomitant]
  4. ACYCLOVIR (ACICLOVIR) (ACICLOVIR) [Concomitant]
  5. PREDNISONE (PREDNISONE) [Concomitant]
  6. BACTRIM (BACTRIM) (SULFAMETHOXAZOLE, TRIMETHOPRIM) [Concomitant]

REACTIONS (3)
  - Thrombocytopenia [None]
  - Platelet count decreased [None]
  - White blood cell count decreased [None]
